FAERS Safety Report 8325110-8 (Version None)
Quarter: 2012Q2

REPORT INFORMATION
  Report Type: 
  Country: None (occurrence: None)
  Receive Date: 20120501
  Receipt Date: 20120426
  Transmission Date: 20120825
  Serious: Yes (Hospitalization)
  Sender: FDA-Public Use
  Company Number: JP-BRACCO-005761

PATIENT
  Age: 55 Year
  Sex: Male
  Weight: 83 kg

DRUGS (15)
  1. FOSRENOL [Concomitant]
  2. SIGMART [Concomitant]
  3. IOPAMIDOL [Suspect]
     Indication: COMPUTERISED TOMOGRAM
     Route: 042
     Dates: start: 20120229, end: 20120229
  4. VICTOZA [Concomitant]
  5. CLONAZEPAM [Concomitant]
  6. BROTIZOLAM [Concomitant]
  7. DIAZEPAM [Concomitant]
  8. PLAVIX [Concomitant]
  9. ASPIRIN [Concomitant]
  10. OMEPRAZOLE [Concomitant]
  11. IOPAMIDOL [Suspect]
     Indication: DEEP VEIN THROMBOSIS
     Route: 042
     Dates: start: 20120229, end: 20120229
  12. ALLOPURINOL [Concomitant]
  13. CINACALCET HYDROCHLORIDE [Concomitant]
  14. PRORENAL [Concomitant]
  15. HUMALOG [Concomitant]

REACTIONS (1)
  - ANAPHYLACTIC SHOCK [None]
